FAERS Safety Report 20476453 (Version 2)
Quarter: 2022Q1

REPORT INFORMATION
  Report Type: Report from Study
  Country: JP (occurrence: JP)
  Receive Date: 20220215
  Receipt Date: 20220224
  Transmission Date: 20220424
  Serious: Yes (Other)
  Sender: FDA-Public Use
  Company Number: JP-PFIZER INC-202200247422

PATIENT

DRUGS (4)
  1. PACLITAXEL [Suspect]
     Active Substance: PACLITAXEL
     Indication: Sarcomatoid carcinoma of the lung
     Dosage: (200 MG/M2, DAY 1), IN A 3-WEEK CYCLE FOR UP TO SIX CYCLES
  2. BEVACIZUMAB [Suspect]
     Active Substance: BEVACIZUMAB
     Indication: Sarcomatoid carcinoma of the lung
     Dosage: (15 MG/KG, DAY 1), IN A 3-WEEK CYCLE FOR UP TO SIX CYCLES
  3. BEVACIZUMAB [Suspect]
     Active Substance: BEVACIZUMAB
     Dosage: MAINTENANCE (15 MG/KG) IN A 3-WEEK CYCLE
  4. CARBOPLATIN [Suspect]
     Active Substance: CARBOPLATIN
     Indication: Sarcomatoid carcinoma of the lung
     Dosage: (6X AUC, DAY 1), IN A 3-WEEK CYCLE FOR UP TO SIX CYCLES

REACTIONS (1)
  - Ileus [Unknown]
